FAERS Safety Report 12505319 (Version 3)
Quarter: 2016Q3

REPORT INFORMATION
  Report Type: Spontaneous
  Country: GB (occurrence: GB)
  Receive Date: 20160628
  Receipt Date: 20160710
  Transmission Date: 20161109
  Serious: Yes (Death, Life-Threatening, Hospitalization)
  Sender: FDA-Public Use
  Company Number: PHHY2016GB072693

PATIENT
  Age: 72 Year
  Sex: Male

DRUGS (5)
  1. ACICLOVIR [Concomitant]
     Active Substance: ACYCLOVIR
     Indication: PRODUCT USED FOR UNKNOWN INDICATION
     Dosage: 400 MG, UNK
     Route: 048
     Dates: start: 20160406, end: 20160417
  2. DEXAMETHASONE. [Concomitant]
     Active Substance: DEXAMETHASONE
     Indication: PLASMA CELL MYELOMA
     Dosage: 20 MG, QD
     Route: 048
     Dates: start: 20160406, end: 20160417
  3. FARYDAK [Suspect]
     Active Substance: PANOBINOSTAT
     Indication: PLASMA CELL MYELOMA
     Dosage: 20 MG, AS INDICATED
     Route: 048
     Dates: start: 20160406, end: 20160417
  4. VELCADE [Concomitant]
     Active Substance: BORTEZOMIB
     Indication: PLASMA CELL MYELOMA
     Dosage: 2.3 MG, QD
     Route: 058
     Dates: start: 20160406, end: 20160416
  5. OMEPRAZOLE. [Concomitant]
     Active Substance: OMEPRAZOLE
     Indication: PRODUCT USED FOR UNKNOWN INDICATION
     Dosage: 20 MG, QD
     Route: 048
     Dates: start: 20160406, end: 20160417

REACTIONS (7)
  - Plasma cell myeloma [Fatal]
  - Hypotension [Recovered/Resolved]
  - Pseudomonas infection [Recovered/Resolved]
  - Diarrhoea [Not Recovered/Not Resolved]
  - Infection [Unknown]
  - Neutropenic sepsis [Recovered/Resolved]
  - Klebsiella infection [Unknown]

NARRATIVE: CASE EVENT DATE: 20160419
